FAERS Safety Report 7512094-5 (Version None)
Quarter: 2011Q2

REPORT INFORMATION
  Report Type: 
  Country: None (occurrence: None)
  Receive Date: 20110531
  Receipt Date: 20110518
  Transmission Date: 20111010
  Serious: Yes (Hospitalization)
  Sender: FDA-Public Use
  Company Number: AU-BAYER-2011-043070

PATIENT
  Age: 15 Year
  Sex: Female
  Weight: 80 kg

DRUGS (2)
  1. YASMIN [Suspect]
     Indication: CONTRACEPTION
     Dosage: 1 DF, UNK
     Dates: start: 20030301, end: 20030609
  2. ZOLOFT [Suspect]
     Indication: DEPRESSION
     Dosage: 50 MG, QD
     Dates: start: 20030301, end: 20030609

REACTIONS (3)
  - DEEP VEIN THROMBOSIS [None]
  - PULMONARY EMBOLISM [None]
  - PAIN IN EXTREMITY [None]
